FAERS Safety Report 7321621-2 (Version None)
Quarter: 2011Q1

REPORT INFORMATION
  Report Type: 
  Country: None (occurrence: None)
  Receive Date: 20110228
  Receipt Date: 20100903
  Transmission Date: 20110831
  Serious: No
  Sender: FDA-Public Use
  Company Number: A0879567A

PATIENT
  Age: 60 Year
  Sex: Male

DRUGS (2)
  1. VALACYCLOVIR [Suspect]
     Indication: GENITAL HERPES
     Dosage: 1G PER DAY
     Route: 048
     Dates: start: 20100805
  2. HUMIRA [Concomitant]

REACTIONS (1)
  - DRUG INEFFECTIVE [None]
